FAERS Safety Report 6485367-5 (Version None)
Quarter: 2009Q4

REPORT INFORMATION
  Report Type: 
  Country: None (occurrence: None)
  Receive Date: 20091209
  Receipt Date: 20090623
  Transmission Date: 20100525
  Serious: No
  Sender: FDA-Public Use
  Company Number: US-AMGEN-KDL352843

PATIENT
  Sex: Female

DRUGS (2)
  1. ENBREL [Suspect]
     Indication: RHEUMATOID ARTHRITIS
     Route: 058
     Dates: start: 20090408
  2. LEFLUNOMIDE [Concomitant]
     Dates: start: 20090101

REACTIONS (3)
  - BLOOD PRESSURE INCREASED [None]
  - JOINT SPRAIN [None]
  - ROAD TRAFFIC ACCIDENT [None]
